FAERS Safety Report 4691483-0 (Version None)
Quarter: 2005Q2

REPORT INFORMATION
  Report Type: 
  Country: None (occurrence: None)
  Receive Date: 20050608
  Receipt Date: 20050404
  Transmission Date: 20051028
  Serious: Yes (Other)
  Sender: FDA-Public Use
  Company Number: 400896

PATIENT

DRUGS (4)
  1. ACCUTANE [Suspect]
     Dates: start: 20031115, end: 20040115
  2. ISOTRETINOIN [Suspect]
     Dates: start: 20040215, end: 20040601
  3. ORAL CONTRACEPTIVE PILL (ORAL CONTRACEPTIVE NOS) [Concomitant]
  4. ORAL CONTRACEPTION (ORAL CONTRACEPTIVE NOS) [Concomitant]

REACTIONS (1)
  - ABORTION SPONTANEOUS [None]
